FAERS Safety Report 7920057-0 (Version None)
Quarter: 2011Q4

REPORT INFORMATION
  Report Type: 
  Country: None (occurrence: None)
  Receive Date: 20111117
  Receipt Date: 20111110
  Transmission Date: 20120403
  Serious: Yes (Hospitalization, Other)
  Sender: FDA-Public Use
  Company Number: US-BAYER-2011-109265

PATIENT
  Age: 50 Year
  Sex: Female

DRUGS (7)
  1. ACETYLSALICYLIC ACID SRT [Suspect]
     Dosage: PERI-PROCEDURAL LOADING DOSE OF THE STUDY MEDICATION
     Dates: start: 20110425
  2. TOPROL-XL [Concomitant]
  3. PLAVIX [Suspect]
     Dosage: UNK
     Dates: start: 20110425
  4. PRASUGREL [Suspect]
  5. HMG COA REDUCTASE INHIBITORS [Concomitant]
  6. ACETYLSALICYLIC ACID SRT [Suspect]
     Dosage: UNK
     Dates: start: 20110426
  7. BETA BLOCKING AGENTS [Concomitant]

REACTIONS (9)
  - URTICARIA [None]
  - DYSPNOEA [None]
  - MALAISE [None]
  - VASCULAR PSEUDOANEURYSM [None]
  - MYOCARDIAL ISCHAEMIA [None]
  - PROCEDURAL PAIN [None]
  - SINUS BRADYCARDIA [None]
  - ELECTROCARDIOGRAM ST-T CHANGE [None]
  - CHEST DISCOMFORT [None]
